FAERS Safety Report 8268334-0 (Version None)
Quarter: 2012Q1

REPORT INFORMATION
  Report Type: 
  Country: None (occurrence: None)
  Receive Date: 20120327
  Receipt Date: 20100412
  Transmission Date: 20120608
  Serious: Yes (Hospitalization)
  Sender: FDA-Public Use
  Company Number: PHHY2010US22881

PATIENT
  Age: 71 Year
  Sex: Male

DRUGS (1)
  1. GLEEVEC [Suspect]
     Indication: GASTRIC CANCER

REACTIONS (3)
  - POST PROCEDURAL COMPLICATION [None]
  - METASTASES TO BLADDER [None]
  - BLADDER NEOPLASM SURGERY [None]
